FAERS Safety Report 13197639 (Version 1)
Quarter: 2017Q1

REPORT INFORMATION
  Report Type: Spontaneous
  Country: US (occurrence: US)
  Receive Date: 20170207
  Receipt Date: 20170207
  Transmission Date: 20170428
  Serious: Yes (Hospitalization)
  Sender: FDA-Public Use
  Company Number: None

PATIENT
  Age: 61 Year
  Sex: Male
  Weight: 130 kg

DRUGS (6)
  1. METHYLPREDNISOLONE (SOLU-MEDROL) [Concomitant]
  2. DELTASONE [Concomitant]
     Active Substance: PREDNISONE
  3. IPILIMUMAB 1MG/KG [Suspect]
     Active Substance: IPILIMUMAB
     Indication: MALIGNANT MELANOMA
     Route: 042
     Dates: start: 20160818, end: 20161222
  4. LANTUS [Concomitant]
     Active Substance: INSULIN GLARGINE
  5. NIVOLUMAB 3MG/KG [Suspect]
     Active Substance: NIVOLUMAB
     Indication: MALIGNANT MELANOMA
     Route: 042
     Dates: start: 20160818, end: 20170105
  6. INSULIN LISPRO (HUMALOG) [Concomitant]

REACTIONS (3)
  - Immune system disorder [None]
  - Hepatitis acute [None]
  - Autoimmune hepatitis [None]

NARRATIVE: CASE EVENT DATE: 20170126
